FAERS Safety Report 26086024 (Version 1)
Quarter: 2025Q4

REPORT INFORMATION
  Report Type: Spontaneous
  Country: US (occurrence: US)
  Receive Date: 20251125
  Receipt Date: 20251125
  Transmission Date: 20260118
  Serious: Yes (Other)
  Sender: TEVA
  Company Number: US-TEVA-VS-3395627

PATIENT
  Age: 50 Year
  Sex: Female

DRUGS (2)
  1. PREDNISONE [Suspect]
     Active Substance: PREDNISONE
     Indication: Product used for unknown indication
     Route: 065
  2. UNSPECIFIED INGREDIENT [Concomitant]
     Active Substance: UNSPECIFIED INGREDIENT
     Indication: Inflammation

REACTIONS (6)
  - Colitis [Unknown]
  - Dermatomyositis [Unknown]
  - Polyarteritis nodosa [Unknown]
  - Autoimmune disorder [Unknown]
  - Cortisol abnormal [Unknown]
  - Drug ineffective [Unknown]
